FAERS Safety Report 21024110 (Version 1)
Quarter: 2022Q3

REPORT INFORMATION
  Report Type: Spontaneous
  Country: US (occurrence: US)
  Receive Date: 20220629
  Receipt Date: 20220629
  Transmission Date: 20221027
  Serious: No
  Sender: FDA-Public Use
  Company Number: US-NOVARTISTESTPH-NVSC2022US147982

PATIENT
  Sex: Female

DRUGS (2)
  1. LIDOCAINE [Interacting]
     Active Substance: LIDOCAINE
     Indication: Wound dehiscence
     Dosage: UNK
     Route: 065
  2. COLLAGENASE SANTYL [Interacting]
     Active Substance: COLLAGENASE CLOSTRIDIUM HISTOLYTICUM
     Indication: Wound dehiscence
     Dosage: UNK
     Route: 065

REACTIONS (4)
  - Pain [Unknown]
  - Insomnia [Unknown]
  - Drug interaction [Not Recovered/Not Resolved]
  - Drug ineffective [Unknown]

NARRATIVE: CASE EVENT DATE: 20220603
